FAERS Safety Report 15889806 (Version 2)
Quarter: 2020Q4

REPORT INFORMATION
  Report Type: Spontaneous
  Country: US (occurrence: US)
  Receive Date: 20190130
  Receipt Date: 20201023
  Transmission Date: 20210113
  Serious: Yes (Other)
  Sender: FDA-Public Use
  Company Number: US-JNJFOC-20190132613

PATIENT
  Age: 70 Year

DRUGS (1)
  1. STELARA [Suspect]
     Active Substance: USTEKINUMAB
     Indication: PRODUCT USED FOR UNKNOWN INDICATION
     Route: 058
     Dates: start: 201602

REACTIONS (4)
  - Platelet count decreased [Unknown]
  - Anaemia [Unknown]
  - Leukopenia [Unknown]
  - Myelofibrosis [Unknown]

NARRATIVE: CASE EVENT DATE: 201901
